FAERS Safety Report 4640070-9 (Version None)
Quarter: 2005Q2

REPORT INFORMATION
  Report Type: 
  Country: None (occurrence: None)
  Receive Date: 20050415
  Receipt Date: 20050330
  Transmission Date: 20051028
  Serious: No
  Sender: FDA-Public Use
  Company Number: 10697

PATIENT
  Age: 65 Year
  Sex: Female

DRUGS (4)
  1. CARBOPLATIN [Suspect]
     Dosage: 610 MG ONCE IV
     Route: 042
     Dates: start: 20040701, end: 20040701
  2. DOLASETRON [Concomitant]
  3. DEXAMETHASONE [Concomitant]
  4. LORATADINE [Concomitant]

REACTIONS (2)
  - HOT FLUSH [None]
  - PRURITUS [None]
